FAERS Safety Report 22989300 (Version 4)
Quarter: 2023Q4

REPORT INFORMATION
  Report Type: Report from Study
  Country: CA (occurrence: CA)
  Receive Date: 20230927
  Receipt Date: 20231121
  Transmission Date: 20240110
  Serious: Yes (Other)
  Sender: FDA-Public Use
  Company Number: CA-002147023-PHHY2018CA145639

PATIENT
  Age: 32 Year
  Sex: Female

DRUGS (13)
  1. COSENTYX [Suspect]
     Active Substance: SECUKINUMAB
     Indication: Psoriatic arthropathy
     Dosage: 150 MG, QW
     Route: 058
     Dates: start: 20181006
  2. COSENTYX [Suspect]
     Active Substance: SECUKINUMAB
     Indication: Psoriasis
     Dosage: 150 MG, QW
     Route: 058
     Dates: start: 20181021
  3. COSENTYX [Suspect]
     Active Substance: SECUKINUMAB
     Dosage: 150 MG, QMO
     Route: 058
  4. COSENTYX [Suspect]
     Active Substance: SECUKINUMAB
     Dosage: 150 MG, QW (AT WEEKS 0, 1, 2, 3, 4 THEN EVERY MONTH)
     Route: 058
  5. COSENTYX [Suspect]
     Active Substance: SECUKINUMAB
     Dosage: 150 MG, QMO
     Route: 058
  6. COSENTYX [Suspect]
     Active Substance: SECUKINUMAB
     Dosage: 150 MG, QMO
     Route: 058
     Dates: start: 20190715, end: 20190715
  7. COSENTYX [Suspect]
     Active Substance: SECUKINUMAB
     Dosage: 150 MG, QMO
     Route: 058
     Dates: end: 20191213
  8. COSENTYX [Suspect]
     Active Substance: SECUKINUMAB
     Dosage: 300 MG, QMO
     Route: 058
     Dates: start: 20181006, end: 20191213
  9. COSENTYX [Suspect]
     Active Substance: SECUKINUMAB
     Dosage: 300 MG, QMO
     Route: 058
     Dates: start: 20230629
  10. PERCOCET [Concomitant]
     Active Substance: ACETAMINOPHEN\OXYCODONE HYDROCHLORIDE
     Indication: Product used for unknown indication
     Dosage: UNK
     Route: 065
     Dates: start: 201804
  11. MELOXICAM [Concomitant]
     Active Substance: MELOXICAM
     Indication: Product used for unknown indication
     Dosage: UNK, PRN
     Route: 065
  12. PREDNISONE [Concomitant]
     Active Substance: PREDNISONE
     Indication: Product used for unknown indication
     Dosage: UNK
     Route: 065
  13. ENSTILAR [Concomitant]
     Active Substance: BETAMETHASONE DIPROPIONATE\CALCIPOTRIENE HYDRATE
     Indication: Product used for unknown indication
     Dosage: UNK
     Route: 061

REACTIONS (20)
  - Psoriatic arthropathy [Unknown]
  - Pain [Not Recovered/Not Resolved]
  - Mobility decreased [Unknown]
  - Osteomyelitis [Unknown]
  - Ear infection [Unknown]
  - Bronchitis [Unknown]
  - Productive cough [Unknown]
  - Lymphadenopathy [Unknown]
  - Infection [Unknown]
  - Malaise [Not Recovered/Not Resolved]
  - Throat irritation [Unknown]
  - Ill-defined disorder [Unknown]
  - Discomfort [Unknown]
  - Fear of disease [Unknown]
  - Sinusitis [Unknown]
  - Psoriasis [Unknown]
  - Oropharyngeal pain [Unknown]
  - Nasal congestion [Unknown]
  - Rhinorrhoea [Unknown]
  - Illness [Unknown]

NARRATIVE: CASE EVENT DATE: 20190701
